FAERS Safety Report 10028685 (Version 2)
Quarter: 2015Q2

REPORT INFORMATION
  Report Type: Spontaneous
  Country: SE (occurrence: SE)
  Receive Date: 20140321
  Receipt Date: 20150408
  Transmission Date: 20150821
  Serious: Yes (Other)
  Sender: FDA-Public Use
  Company Number: SE-GLAXOSMITHKLINE-B0978779A

PATIENT
  Age: 61 Year
  Sex: Female

DRUGS (5)
  1. MALARONE [Suspect]
     Active Substance: ATOVAQUONE\PROGUANIL HYDROCHLORIDE
     Indication: MALARIA PROPHYLAXIS
     Dosage: UNK
     Route: 065
     Dates: start: 20140220, end: 20140304
  2. TRADOLAN [Concomitant]
     Active Substance: TRAMADOL
  3. TRAMADOL [Concomitant]
     Active Substance: TRAMADOL
  4. NORSPAN [Concomitant]
     Active Substance: BUPRENORPHINE
  5. SAROTEN [Concomitant]
     Active Substance: AMITRIPTYLINE

REACTIONS (2)
  - Eczema [Not Recovered/Not Resolved]
  - Angioedema [Not Recovered/Not Resolved]

NARRATIVE: CASE EVENT DATE: 201403
